FAERS Safety Report 7030969-0 (Version None)
Quarter: 2010Q4

REPORT INFORMATION
  Report Type: 
  Country: None (occurrence: None)
  Receive Date: 20101006
  Receipt Date: 20091223
  Transmission Date: 20110411
  Serious: No
  Sender: FDA-Public Use
  Company Number: US-BRISTOL-MYERS SQUIBB COMPANY-14910426

PATIENT
  Age: 18 Year
  Sex: Female
  Weight: 62 kg

DRUGS (1)
  1. KENALOG-40 [Suspect]
     Dates: start: 20090901

REACTIONS (15)
  - ANXIETY [None]
  - BURNING SENSATION [None]
  - DECREASED APPETITE [None]
  - DEPRESSION [None]
  - HYPERAESTHESIA [None]
  - INJECTION SITE ATROPHY [None]
  - INJECTION SITE PAIN [None]
  - INJECTION SITE SWELLING [None]
  - INSOMNIA [None]
  - NASOPHARYNGITIS [None]
  - PERSONALITY CHANGE [None]
  - PSYCHIATRIC SYMPTOM [None]
  - RASH [None]
  - SKIN DISCOLOURATION [None]
  - SKIN HYPOPIGMENTATION [None]
